FAERS Safety Report 17439013 (Version 1)
Quarter: 2020Q1

REPORT INFORMATION
  Report Type: Spontaneous
  Country: US (occurrence: US)
  Receive Date: 20200205
  Receipt Date: 20200205
  Transmission Date: 20200409
  Serious: No
  Sender: FDA-Public Use
  Company Number: None

PATIENT
  Age: 34 Year
  Sex: Female

DRUGS (1)
  1. ENTYVIO [Suspect]
     Active Substance: VEDOLIZUMAB
     Dosage: ?          OTHER DOSE:300MG Q4 WEEKS;OTHER FREQUENCY:OTHER;?
     Route: 041
     Dates: start: 201911, end: 202002

REACTIONS (2)
  - Colitis ulcerative [None]
  - Therapy cessation [None]

NARRATIVE: CASE EVENT DATE: 20200205
